FAERS Safety Report 6285027-X (Version None)
Quarter: 2009Q3

REPORT INFORMATION
  Report Type: 
  Country: None (occurrence: None)
  Receive Date: 20090727
  Receipt Date: 20090715
  Transmission Date: 20100115
  Serious: Yes (Hospitalization)
  Sender: FDA-Public Use
  Company Number: US-BAYER-200925670NA

PATIENT
  Age: 43 Year
  Sex: Female

DRUGS (4)
  1. BETASERON [Suspect]
     Indication: MULTIPLE SCLEROSIS
     Dosage: TOTAL DAILY DOSE: 8 MIU
     Route: 058
     Dates: start: 20070105, end: 20070331
  2. BETASERON [Suspect]
     Route: 058
  3. TRILEPTAL [Suspect]
     Indication: CONVULSION
  4. DEPAKOTE [Suspect]
     Indication: CONVULSION

REACTIONS (1)
  - ANAEMIA [None]
